FAERS Safety Report 6050959-4 (Version None)
Quarter: 2009Q1

REPORT INFORMATION
  Report Type: 
  Country: None (occurrence: None)
  Receive Date: 20090126
  Receipt Date: 20080825
  Transmission Date: 20090719
  Serious: Yes (Other)
  Sender: FDA-Public Use
  Company Number: US-TYCO HEALTHCARE/MALLINCKRODT-T200801341

PATIENT

DRUGS (9)
  1. OPTIRAY 300 [Suspect]
     Indication: COMPUTERISED TOMOGRAM
     Dosage: 125 ML, SINGLE
     Route: 042
     Dates: start: 20080814, end: 20080814
  2. ONE A DAY                          /02262701/ [Concomitant]
     Indication: SUPPLEMENTATION THERAPY
     Dosage: UNK, QD
     Route: 048
  3. PROTONIX                           /01263201/ [Concomitant]
     Indication: PEPTIC ULCER
     Dosage: 40 MG, QD
     Route: 048
  4. WELLBUTRIN [Concomitant]
     Indication: DEPRESSION
     Dosage: 150 MG, QD
     Route: 048
  5. ZOLOFT [Concomitant]
     Indication: DEPRESSION
     Dosage: 100 MG, QD
     Route: 048
  6. KLONOPIN [Concomitant]
     Indication: DEPRESSION
     Dosage: UNK, QD
     Route: 048
  7. ANZEMET [Concomitant]
     Dosage: UNK, QD
     Route: 048
  8. MAXZIDE [Concomitant]
     Dosage: 25 MG, QD
     Route: 048
  9. MORPHINE SULFATE [Concomitant]
     Dosage: UNK, UNK

REACTIONS (4)
  - DYSPNOEA [None]
  - NAUSEA [None]
  - THROAT TIGHTNESS [None]
  - VOMITING [None]
